FAERS Safety Report 7139154-5 (Version None)
Quarter: 2010Q4

REPORT INFORMATION
  Report Type: 
  Country: None (occurrence: None)
  Receive Date: 20101206
  Receipt Date: 20101126
  Transmission Date: 20110411
  Serious: Yes (Other)
  Sender: FDA-Public Use
  Company Number: GB-ASTRAZENECA-2010SE56277

PATIENT
  Age: 69 Year
  Sex: Female
  Weight: 58 kg

DRUGS (6)
  1. ESOMEPRAZOLE [Suspect]
     Indication: GASTRIC ULCER
     Route: 048
     Dates: start: 20100811, end: 20100913
  2. DEPO-MEDROL [Concomitant]
     Indication: RHEUMATOID ARTHRITIS
     Route: 030
     Dates: start: 20081117
  3. FOSAMAX [Concomitant]
     Indication: RHEUMATOID ARTHRITIS
     Route: 048
     Dates: start: 20021128, end: 20100624
  4. METHOTREXATE [Concomitant]
     Route: 030
  5. PREDNISOLONE [Concomitant]
     Indication: RHEUMATOID ARTHRITIS
     Route: 048
     Dates: start: 20000728
  6. TYLEX [Concomitant]
     Indication: RHEUMATOID ARTHRITIS
     Dosage: THREE TIMES A DAY
     Route: 048
     Dates: start: 20000802

REACTIONS (2)
  - RENAL CYST [None]
  - TOXIC EPIDERMAL NECROLYSIS [None]
